FAERS Safety Report 8960108 (Version 1)
Quarter: 2012Q4

REPORT INFORMATION
  Report Type: 
  Country: NL (occurrence: NL)
  Receive Date: 20121212
  Receipt Date: 20121212
  Transmission Date: 20130627
  Serious: Yes (Hospitalization)
  Sender: FDA-Public Use
  Company Number: NL-PFIZER INC-2012308443

PATIENT
  Age: 66 Year
  Sex: Male
  Weight: 96 kg

DRUGS (12)
  1. GENOTROPIN [Suspect]
     Dosage: 0.3 mg, 1x/day, 7 injections/week
     Route: 058
     Dates: start: 20070620
  2. CORTISONE ACETATE [Concomitant]
     Indication: ACTH DECREASED
     Dosage: UNK
     Dates: start: 20060607
  3. LEVOTHYROXINE [Concomitant]
     Indication: TSH DECREASED
     Dosage: UNK
     Dates: start: 20060607
  4. LEVOTHYROXINE [Concomitant]
     Indication: PRIMARY HYPOTHYROIDISM
  5. ACETOSAL [Concomitant]
     Indication: CORONARY INSUFFICIENCY
     Dosage: UNK
     Dates: start: 20060607
  6. NORVASC [Concomitant]
     Indication: CORONARY INSUFFICIENCY
     Dosage: UNK
     Dates: start: 20060607
  7. SUSTANON [Concomitant]
     Indication: LUTEINISING HORMONE DEFICIENCY
     Dosage: UNK
     Dates: start: 20060607
  8. SUSTANON [Concomitant]
     Indication: FOLLICLE-STIMULATING HORMONE DEFICIENCY
  9. SUSTANON [Concomitant]
     Indication: TESTICULAR HYPOGONADISM
  10. ZOCOR [Concomitant]
     Indication: PURE HYPERCHOLESTEROLAEMIA
     Dosage: UNK
     Dates: start: 20060607
  11. RENITEC [Concomitant]
     Indication: CORONARY INSUFFICIENCY
     Dosage: UNK
     Dates: start: 20060607
  12. SIMVASTATIN [Concomitant]
     Indication: HYPERLIPIDEMIA
     Dosage: UNK
     Dates: start: 20070607

REACTIONS (1)
  - Cardiac disorder [Unknown]
